FAERS Safety Report 5719656-6 (Version None)
Quarter: 2008Q2

REPORT INFORMATION
  Report Type: 
  Country: None (occurrence: None)
  Receive Date: 20080424
  Receipt Date: 20080415
  Transmission Date: 20081010
  Serious: Yes (Hospitalization)
  Sender: FDA-Public Use
  Company Number: 2008-01307

PATIENT
  Age: 55 Year
  Sex: Male

DRUGS (1)
  1. VELCADE [Suspect]
     Indication: MULTIPLE MYELOMA

REACTIONS (5)
  - AMMONIA INCREASED [None]
  - CONFUSIONAL STATE [None]
  - HEPATIC FAILURE [None]
  - HEPATIC NECROSIS [None]
  - MENTAL STATUS CHANGES [None]
